FAERS Safety Report 6424133-3 (Version None)
Quarter: 2009Q4

REPORT INFORMATION
  Report Type: 
  Country: None (occurrence: None)
  Receive Date: 20091029
  Receipt Date: 20091015
  Transmission Date: 20100525
  Serious: Yes (Hospitalization)
  Sender: FDA-Public Use
  Company Number: 8052707

PATIENT
  Age: 58 Year
  Sex: Female
  Weight: 59.2 kg

DRUGS (7)
  1. CERTOLIZUMAB PEGOL [Suspect]
     Indication: RHEUMATOID ARTHRITIS
     Dosage: 400 MG 1 2W SC
     Route: 058
     Dates: start: 20060111, end: 20060628
  2. CERTOLIZUMAB PEGOL [Suspect]
     Indication: RHEUMATOID ARTHRITIS
     Dosage: 400 MG 1 2W SC
     Route: 058
     Dates: start: 20060713, end: 20071128
  3. CERTOLIZUMAB PEGOL [Suspect]
     Indication: RHEUMATOID ARTHRITIS
     Dosage: 200 MG 1 2W SC
     Route: 058
     Dates: start: 20071212, end: 20090916
  4. METHOTREXATE [Concomitant]
  5. FOLIC ACID [Concomitant]
  6. MOVALIS [Concomitant]
  7. BETALOC ZOK [Concomitant]

REACTIONS (3)
  - HAEMOGLOBIN DECREASED [None]
  - PYELONEPHRITIS [None]
  - RED BLOOD CELL COUNT DECREASED [None]
